FAERS Safety Report 8383193-3 (Version None)
Quarter: 2012Q2

REPORT INFORMATION
  Report Type: 
  Country: None (occurrence: None)
  Receive Date: 20120524
  Receipt Date: 20120515
  Transmission Date: 20120825
  Serious: Yes (Other)
  Sender: FDA-Public Use
  Company Number: JP-VERTEX PHARMACEUTICALS INC.-AE-2012-007339

PATIENT
  Age: 55 Year
  Sex: Male

DRUGS (3)
  1. REBETOL [Concomitant]
     Route: 048
     Dates: start: 20120508, end: 20120510
  2. TELAVIC (TELAPREVIR) [Suspect]
     Route: 048
     Dates: start: 20120508, end: 20120510
  3. PEG-INTRON [Concomitant]
     Route: 058
     Dates: start: 20120508, end: 20120510

REACTIONS (1)
  - DRUG ERUPTION [None]
